FAERS Safety Report 21914112 (Version 1)
Quarter: 2023Q1

REPORT INFORMATION
  Report Type: Spontaneous
  Country: US (occurrence: US)
  Receive Date: 20230126
  Receipt Date: 20230126
  Transmission Date: 20230417
  Serious: No
  Sender: FDA-Public Use
  Company Number: US-ALLERGAN-2228799US

PATIENT
  Age: 62 Year
  Sex: Female
  Weight: 77.11 kg

DRUGS (1)
  1. BOTOX COSMETIC [Suspect]
     Active Substance: ONABOTULINUMTOXINA
     Indication: Skin wrinkling
     Dosage: 40 UNITS, SINGLE
     Route: 030
     Dates: start: 20220824, end: 20220824

REACTIONS (2)
  - Injection site pain [Recovering/Resolving]
  - Therapeutic response decreased [Unknown]

NARRATIVE: CASE EVENT DATE: 20220824
